FAERS Safety Report 16723860 (Version 1)
Quarter: 2019Q3

REPORT INFORMATION
  Report Type: Spontaneous
  Country: DE (occurrence: DE)
  Receive Date: 20190821
  Receipt Date: 20190821
  Transmission Date: 20191005
  Serious: Yes (Other)
  Sender: FDA-Public Use
  Company Number: DE-SA-2019SA105525

PATIENT
  Age: 6 Year
  Sex: Male

DRUGS (1)
  1. MYOZYME [Suspect]
     Active Substance: ALGLUCOSIDASE ALFA
     Indication: GLYCOGEN STORAGE DISEASE TYPE II
     Dosage: 40 MG/KG, QW
     Route: 065
     Dates: start: 2016

REACTIONS (3)
  - Device related infection [Recovered/Resolved]
  - Body temperature increased [Recovered/Resolved]
  - Pyrexia [Recovered/Resolved]
